FAERS Safety Report 21591905 (Version 1)
Quarter: 2022Q4

REPORT INFORMATION
  Report Type: Spontaneous
  Country: DE (occurrence: DE)
  Receive Date: 20221114
  Receipt Date: 20221114
  Transmission Date: 20230112
  Serious: Yes (Other)
  Sender: FDA-Public Use
  Company Number: DE-DSJP-DSE-2022-140864

PATIENT
  Age: 78 Year
  Sex: Male
  Weight: 78 kg

DRUGS (2)
  1. EDOXABAN TOSYLATE [Suspect]
     Active Substance: EDOXABAN TOSYLATE
     Indication: Atrial fibrillation
     Dosage: 60 MG, QD
     Route: 065
     Dates: start: 202109
  2. XTANDI [Concomitant]
     Active Substance: ENZALUTAMIDE
     Indication: Prostate cancer
     Dosage: UNK
     Route: 065
     Dates: start: 2022

REACTIONS (2)
  - Prostate cancer [Not Recovered/Not Resolved]
  - Neuroendocrine carcinoma of the skin [Not Recovered/Not Resolved]

NARRATIVE: CASE EVENT DATE: 20220201
